FAERS Safety Report 5371530-3 (Version None)
Quarter: 2007Q2

REPORT INFORMATION
  Report Type: 
  Country: None (occurrence: None)
  Receive Date: 20070625
  Receipt Date: 20070611
  Transmission Date: 20071010
  Serious: Yes (Hospitalization, Other)
  Sender: FDA-Public Use
  Company Number: 155083USA

PATIENT
  Age: 69 Year
  Sex: Female

DRUGS (2)
  1. FLUOROURACIL [Suspect]
     Indication: GASTRIC CANCER
     Dosage: CYCLE 2, DAYS 1-4 Q 28 DAYS (1720 MG), IV
     Route: 042
     Dates: start: 20060918, end: 20060922
  2. CISPLATIN [Suspect]
     Indication: GASTRIC CANCER
     Dosage: CYCLE 2, 172 MG, 1 Q 28 DAYS, (172 MG), IV
     Route: 042
     Dates: start: 20060918, end: 20060918

REACTIONS (4)
  - DEHYDRATION [None]
  - INFUSION SITE CELLULITIS [None]
  - INTESTINAL OBSTRUCTION [None]
  - RENAL FAILURE [None]
